FAERS Safety Report 10415402 (Version 1)
Quarter: 2014Q3

REPORT INFORMATION
  Report Type: Spontaneous
  Country: JP (occurrence: JP)
  Receive Date: 20140828
  Receipt Date: 20140828
  Transmission Date: 20150326
  Serious: Yes (Death, Other)
  Sender: FDA-Public Use
  Company Number: PHHY2014JP105736

PATIENT
  Age: 64 Year
  Sex: Male

DRUGS (4)
  1. FLUDARABINE [Suspect]
     Active Substance: FLUDARABINE PHOSPHATE
     Indication: ADULT T-CELL LYMPHOMA/LEUKAEMIA
     Dosage: 30 MG/M2, PER DAY
  2. CHEMOTHERAPEUTICS [Concomitant]
     Active Substance: UNSPECIFIED INGREDIENT
  3. CICLOSPORIN [Suspect]
     Active Substance: CYCLOSPORINE
     Indication: PROPHYLAXIS AGAINST GRAFT VERSUS HOST DISEASE
  4. BUSULPHAN [Suspect]
     Active Substance: BUSULFAN
     Dosage: 0.8 MG/KG, Q12H
     Route: 042

REACTIONS (4)
  - Adult T-cell lymphoma/leukaemia [Fatal]
  - Malignant neoplasm progression [Fatal]
  - Graft versus host disease in liver [Unknown]
  - Adult T-cell lymphoma/leukaemia recurrent [Fatal]
